FAERS Safety Report 22220081 (Version 2)
Quarter: 2024Q1

REPORT INFORMATION
  Report Type: Other
  Country: AU (occurrence: AU)
  Receive Date: 20230417
  Receipt Date: 20240117
  Transmission Date: 20240409
  Serious: Yes (Other)
  Sender: FDA-Public Use
  Company Number: AU-ASTELLAS-2023US011806

PATIENT
  Age: 28 Year
  Sex: Male

DRUGS (5)
  1. TACROLIMUS [Suspect]
     Active Substance: TACROLIMUS
     Indication: Uveitis
     Dosage: UNK UNK, UNKNOWN FREQ.
     Route: 065
  2. ACTEMRA [Suspect]
     Active Substance: TOCILIZUMAB
     Indication: Uveitis
     Dosage: 8 MG/KG, EVERY 4 WEEKS (DOSING AT 600 MG)
     Route: 042
  3. ADALIMUMAB [Suspect]
     Active Substance: ADALIMUMAB\ISOPROPYL ALCOHOL
     Indication: Uveitis
     Dosage: UNK UNK, UNKNOWN FREQ.
     Route: 065
  4. AZATHIOPRINE [Suspect]
     Active Substance: AZATHIOPRINE
     Indication: Uveitis
     Dosage: UNK UNK, UNKNOWN FREQ.
     Route: 065
  5. MYCOPHENOLATE MOFETIL [Suspect]
     Active Substance: MYCOPHENOLATE MOFETIL
     Indication: Uveitis
     Dosage: UNK UNK, UNKNOWN FREQ.
     Route: 065
     Dates: start: 2019

REACTIONS (4)
  - Uveitis [Unknown]
  - Condition aggravated [Unknown]
  - Off label use [Unknown]
  - Drug ineffective for unapproved indication [Unknown]
